FAERS Safety Report 7492653-9 (Version None)
Quarter: 2011Q2

REPORT INFORMATION
  Report Type: 
  Country: None (occurrence: None)
  Receive Date: 20110519
  Receipt Date: 20100124
  Transmission Date: 20111010
  Serious: Yes (Hospitalization, Other)
  Sender: FDA-Public Use
  Company Number: US-BAYER-201012070NA

PATIENT
  Age: 68 Year
  Sex: Female
  Weight: 102 kg

DRUGS (21)
  1. ATENOLOL [Concomitant]
     Route: 048
  2. IMDUR [Concomitant]
     Dosage: 60 MG
     Route: 048
  3. ZOCOR [Concomitant]
     Dosage: 20 MG
     Route: 048
  4. ASPIRIN [Concomitant]
     Dosage: UNK
     Route: 048
     Dates: end: 20031021
  5. HEPARIN [Concomitant]
     Dosage: UNK
     Route: 042
     Dates: start: 20031014
  6. PROPOFOL [Concomitant]
     Dosage: UNK
     Route: 042
     Dates: start: 20031022
  7. SODIUM BICARBONATE [Concomitant]
     Dosage: 1 AMP
     Route: 042
     Dates: start: 20031022
  8. NITROGLYCERIN [Concomitant]
     Dosage: UNK
     Route: 042
     Dates: start: 20031022
  9. ACETYLSALICYLIC ACID SRT [Concomitant]
  10. ANCEF [Concomitant]
     Dosage: 2 GRAMS
     Route: 042
     Dates: start: 20031022
  11. FENTANYL [Concomitant]
     Dosage: UNK
     Route: 042
     Dates: start: 20031022
  12. LIPITOR [Concomitant]
     Route: 048
  13. NIPRIDE [Concomitant]
  14. BETAPACE [Concomitant]
  15. TRASYLOL [Suspect]
     Indication: CORONARY ARTERY BYPASS
     Dosage: 200 CC, THEN INFUSION AT 50CC/HR
     Route: 042
     Dates: start: 20031022, end: 20031022
  16. PRINIVIL [Concomitant]
     Dosage: 2.5 MG
     Route: 048
     Dates: start: 20031001
  17. INSULIN [Concomitant]
     Dosage: UNK
     Route: 042
     Dates: start: 20031022
  18. VASOTEC [Concomitant]
  19. COUMADIN [Concomitant]
  20. PLAVIX [Concomitant]
     Dosage: 75 MG
     Route: 048
     Dates: start: 20031001
  21. VERSED [Concomitant]
     Dosage: UNK
     Route: 042
     Dates: start: 20031022

REACTIONS (16)
  - MULTI-ORGAN FAILURE [None]
  - ANXIETY [None]
  - INJURY [None]
  - DEPRESSION [None]
  - IRRITABILITY [None]
  - ANHEDONIA [None]
  - RENAL INJURY [None]
  - CEREBROVASCULAR ACCIDENT [None]
  - STRESS [None]
  - MONOPLEGIA [None]
  - PAIN [None]
  - RENAL FAILURE [None]
  - EMOTIONAL DISTRESS [None]
  - UNEVALUABLE EVENT [None]
  - RENAL IMPAIRMENT [None]
  - FEAR [None]
